FAERS Safety Report 25951651 (Version 1)
Quarter: 2025Q4

REPORT INFORMATION
  Report Type: Spontaneous
  Country: US (occurrence: US)
  Receive Date: 20251023
  Receipt Date: 20251023
  Transmission Date: 20260117
  Serious: Yes (Hospitalization, Other)
  Sender: NIVAGEN PHARMACEUTICALS INC
  Company Number: US-NPI-000144

PATIENT
  Age: 21 Year
  Sex: Female
  Weight: 52 kg

DRUGS (4)
  1. DEXMEDETOMIDINE [Suspect]
     Active Substance: DEXMEDETOMIDINE
     Indication: Sedation
     Dosage: DEXMEDETOMIDINE INFUSION WAS ADJUSTED TO 0.6 MCG/KG/H,
     Route: 042
  2. FENTANYL [Concomitant]
     Active Substance: FENTANYL
     Indication: Product used for unknown indication
     Route: 042
  3. HEPARIN [Concomitant]
     Active Substance: HEPARIN SODIUM
     Indication: Product used for unknown indication
     Dosage: 4000 U
     Route: 042
  4. GLYCOPYRROLATE [Suspect]
     Active Substance: GLYCOPYRROLATE
     Indication: Bradyarrhythmia
     Dosage: TWO SEPARATE PUSHES OF 0.2 MG GLYCOPYRROLATE IV 3 MINUTES APART
     Route: 042

REACTIONS (3)
  - Acute pulmonary oedema [Recovered/Resolved]
  - Hypertensive crisis [Recovered/Resolved]
  - Drug interaction [Recovered/Resolved]
